FAERS Safety Report 5101229-X (Version None)
Quarter: 2006Q3

REPORT INFORMATION
  Report Type: 
  Country: None (occurrence: None)
  Receive Date: 20060911
  Receipt Date: 20060615
  Transmission Date: 20061208
  Serious: Yes (Other)
  Sender: FDA-Public Use
  Company Number: PHBS2006JP09051

PATIENT
  Age: 50 Year
  Sex: Male

DRUGS (8)
  1. LAMISIL [Suspect]
     Indication: NAIL TINEA
     Dosage: 125 MG/D
     Route: 048
     Dates: start: 20060206
  2. ZADITEN [Concomitant]
     Indication: RHINITIS SEASONAL
     Dosage: 2 MG/D
     Route: 048
     Dates: start: 20060203, end: 20060320
  3. NIPOLAZIN [Concomitant]
     Indication: RHINITIS SEASONAL
     Dates: start: 20060401, end: 20060401
  4. MERISLON [Concomitant]
     Dosage: 18 MG
     Route: 048
     Dates: start: 20060114, end: 20060320
  5. ADETPHOS [Concomitant]
     Route: 048
     Dates: start: 20060114
  6. CYANOCOBALAMIN [Concomitant]
     Dosage: 1500 UG
     Route: 048
     Dates: start: 20060114
  7. CARNACULIN [Concomitant]
     Dosage: 150 MG
     Route: 048
     Dates: start: 20060613
  8. ONON [Concomitant]
     Dates: start: 20060203, end: 20060320

REACTIONS (3)
  - DEAFNESS NEUROSENSORY [None]
  - MALIGNANT CRANIAL NERVE NEOPLASM [None]
  - TINNITUS [None]
